FAERS Safety Report 9554350 (Version 1)
Quarter: 2013Q3

REPORT INFORMATION
  Report Type: Spontaneous
  Country: GB (occurrence: GB)
  Receive Date: 20130925
  Receipt Date: 20130925
  Transmission Date: 20140515
  Serious: Yes (Death, Life-Threatening)
  Sender: FDA-Public Use
  Company Number: GB-TEVA-433006ISR

PATIENT
  Age: 44 Year
  Sex: Male
  Weight: 79 kg

DRUGS (6)
  1. WARFARIN [Suspect]
     Indication: PORTAL VEIN THROMBOSIS
     Route: 048
     Dates: end: 20130617
  2. WARFARIN [Suspect]
     Route: 048
     Dates: start: 20130617
  3. PROPRANOLOL [Concomitant]
  4. OMEPRAZOLE [Concomitant]
  5. AMITRIPTYLINE [Concomitant]
  6. MORPHINE [Concomitant]

REACTIONS (5)
  - Peritoneal haemorrhage [Fatal]
  - Splenic rupture [Not Recovered/Not Resolved]
  - Splenic haematoma [Not Recovered/Not Resolved]
  - Abdominal discomfort [Not Recovered/Not Resolved]
  - Syncope [Not Recovered/Not Resolved]
